FAERS Safety Report 8242373 (Version 4)
Quarter: 2013Q3

REPORT INFORMATION
  Report Type: Spontaneous
  Country: US (occurrence: US)
  Receive Date: 20111114
  Receipt Date: 20130708
  Transmission Date: 20140515
  Serious: Yes (Life-Threatening, Hospitalization)
  Sender: FDA-Public Use
  Company Number: US-JNJFOC-20111013457

PATIENT
  Age: 70 Year
  Sex: Female
  Weight: 103.42 kg

DRUGS (19)
  1. REMICADE [Suspect]
     Indication: PSORIATIC ARTHROPATHY
     Route: 042
     Dates: start: 20111003, end: 20111011
  2. INSULIN [Concomitant]
     Indication: DIABETES MELLITUS
     Dosage: DOSE: 15 UNITS
     Route: 058
  3. INSULIN [Concomitant]
     Indication: DIABETES MELLITUS
     Dosage: DOSE: 12 UNITS
     Route: 058
  4. OMEPRAZOLE [Concomitant]
     Indication: GASTROOESOPHAGEAL REFLUX DISEASE
     Route: 065
  5. ZOLOFT [Concomitant]
     Indication: DEPRESSION
     Route: 065
  6. PRAVASTATIN [Concomitant]
     Indication: BLOOD CHOLESTEROL
     Route: 048
  7. CALTRATE + D [Concomitant]
     Route: 048
  8. ASPIRIN [Concomitant]
     Route: 048
  9. METFORMIN [Concomitant]
     Indication: DIABETES MELLITUS
     Route: 048
  10. METFORMIN [Concomitant]
     Indication: DIABETES MELLITUS
     Route: 048
  11. VICTOZA [Concomitant]
     Indication: DIABETES MELLITUS
     Route: 058
  12. PROBIOTIC [Concomitant]
     Indication: GASTROOESOPHAGEAL REFLUX DISEASE
     Route: 048
  13. AMMONIUM LACTATE [Concomitant]
     Indication: PSORIATIC ARTHROPATHY
     Route: 061
  14. CLOBEX [Concomitant]
     Indication: PSORIATIC ARTHROPATHY
     Route: 061
  15. DOVONEX [Concomitant]
     Indication: PSORIATIC ARTHROPATHY
     Route: 061
  16. LOSARTAN [Concomitant]
     Indication: HYPERTENSION
     Route: 065
  17. DILTIAZEM [Concomitant]
     Indication: HYPERTENSION
     Route: 065
  18. TYLENOL EXTRA STRENGTH [Concomitant]
     Indication: PREMEDICATION
     Route: 048
     Dates: start: 20111003
  19. ZYRTEC [Concomitant]
     Indication: PREMEDICATION
     Route: 048
     Dates: start: 20111003

REACTIONS (21)
  - Infusion related reaction [Recovered/Resolved]
  - Gastroenteritis viral [Recovered/Resolved]
  - Convulsion [Recovered/Resolved]
  - Urinary incontinence [Recovered/Resolved]
  - Faecal incontinence [Recovered/Resolved]
  - Hypertension [Recovered/Resolved]
  - Amnesia [Recovered/Resolved]
  - Blood pressure decreased [Recovered/Resolved]
  - Abdominal pain [Recovered/Resolved]
  - Blood creatinine increased [Recovered/Resolved]
  - Infusion related reaction [Recovered/Resolved]
  - Pyrexia [Recovered/Resolved]
  - Hypotension [Recovered/Resolved]
  - Rash [Recovered/Resolved]
  - Swelling face [Recovered/Resolved]
  - Lip swelling [Recovered/Resolved]
  - Nausea [Recovered/Resolved]
  - Pruritus [Recovered/Resolved]
  - Oedema mouth [Recovered/Resolved]
  - Local swelling [Recovered/Resolved]
  - Pain in extremity [Recovered/Resolved]
